FAERS Safety Report 10185037 (Version 1)
Quarter: 2014Q2

REPORT INFORMATION
  Report Type: Spontaneous
  Country: UY (occurrence: UY)
  Receive Date: 20140521
  Receipt Date: 20140521
  Transmission Date: 20141212
  Serious: Yes (Hospitalization)
  Sender: FDA-Public Use
  Company Number: UY-BAYER-2014-070906

PATIENT
  Age: 42 Year
  Sex: Female

DRUGS (4)
  1. YASMIN [Suspect]
     Indication: CONTRACEPTION
     Dosage: UNK
     Route: 048
  2. OMEPRAZOLE [Concomitant]
  3. DIAFORMIN [Concomitant]
  4. COZAAR [Concomitant]

REACTIONS (5)
  - Abdominal hernia obstructive [Recovered/Resolved]
  - Vomiting [Recovered/Resolved]
  - Diarrhoea [Recovered/Resolved]
  - Drug dose omission [Recovered/Resolved]
  - Withdrawal bleed [Recovered/Resolved]
